FAERS Safety Report 4912778-9 (Version None)
Quarter: 2006Q1

REPORT INFORMATION
  Report Type: 
  Country: None (occurrence: None)
  Receive Date: 20060215
  Receipt Date: 20060127
  Transmission Date: 20060701
  Serious: Yes (Other)
  Sender: FDA-Public Use
  Company Number: JP-ROCHE-434737

PATIENT
  Age: 50 Year
  Sex: Female

DRUGS (1)
  1. TAMIFLU [Suspect]
     Dosage: THERAPY DURATION = 2 DAYS
     Route: 048

REACTIONS (2)
  - CONVULSION [None]
  - EYE PAIN [None]
